FAERS Safety Report 4987359-1 (Version None)
Quarter: 2006Q2

REPORT INFORMATION
  Report Type: 
  Country: None (occurrence: None)
  Receive Date: 20060424
  Receipt Date: 20060407
  Transmission Date: 20061013
  Serious: Yes (Hospitalization, Congenital Anomaly)
  Sender: FDA-Public Use
  Company Number: 8013248

PATIENT
  Sex: Male
  Weight: 6.9 kg

DRUGS (8)
  1. KEPPRA [Suspect]
     Dosage: IU
     Route: 015
     Dates: end: 20050516
  2. ZYRTEC [Suspect]
     Indication: HYPERSENSITIVITY
     Dosage: IU
     Route: 015
  3. DILANTIN [Suspect]
     Indication: EPILEPSY
     Dosage: IU
     Route: 015
  4. PAXIL [Suspect]
     Indication: DEPRESSION
     Dosage: IU
     Route: 016
  5. SEROQUEL [Suspect]
     Indication: SOMNOLENCE
     Dosage: IU
     Route: 015
  6. CITRUCEL [Suspect]
     Dosage: IU
     Route: 015
  7. FOLIC ACID [Suspect]
     Indication: ANAEMIA
     Dosage: IU
     Route: 015
  8. PHENYTOIN [Suspect]

REACTIONS (4)
  - ADRENAL INSUFFICIENCY [None]
  - ARNOLD-CHIARI MALFORMATION [None]
  - DRUG EXPOSURE DURING PREGNANCY [None]
  - PREMATURE BABY [None]
